FAERS Safety Report 9761803 (Version 1)
Quarter: 2013Q4

REPORT INFORMATION
  Report Type: Spontaneous
  Country: US (occurrence: US)
  Receive Date: 20131216
  Receipt Date: 20131216
  Transmission Date: 20140711
  Serious: No
  Sender: FDA-Public Use
  Company Number: US-BIOGENIDEC-2013BI102488

PATIENT
  Age: 62 Year
  Sex: Female

DRUGS (13)
  1. TECFIDERA [Suspect]
     Indication: MULTIPLE SCLEROSIS
     Route: 048
     Dates: start: 201304
  2. AMPYRA ER [Concomitant]
  3. EFFEXOR XR [Concomitant]
  4. EFFEXOR XR [Concomitant]
  5. TYLENOL PM EX-STREGTH [Concomitant]
  6. EXCEDRIN MIGRAINE [Concomitant]
  7. LIPITOR [Concomitant]
  8. NEURONTIN [Concomitant]
  9. SYNTHROID [Concomitant]
  10. BACLOFEN [Concomitant]
  11. TOPAMAX [Concomitant]
  12. WELLBUTRIN XL [Concomitant]
  13. ACIPHEX EC [Concomitant]

REACTIONS (1)
  - Overdose [Unknown]
